FAERS Safety Report 9464230 (Version 2)
Quarter: 2014Q1

REPORT INFORMATION
  Report Type: Spontaneous
  Country: US (occurrence: US)
  Receive Date: 20130819
  Receipt Date: 20140207
  Transmission Date: 20141002
  Serious: Yes (Death, Congenital Anomaly, Other)
  Sender: FDA-Public Use
  Company Number: US-PFIZER INC-2013236669

PATIENT
  Sex: Male

DRUGS (33)
  1. ZOLOFT [Suspect]
     Dosage: UNK
     Route: 064
     Dates: start: 1986, end: 1991
  2. ZOLOFT [Suspect]
     Dosage: UNK
     Route: 064
     Dates: start: 1994, end: 2000
  3. ZOLOFT [Suspect]
     Dosage: UNK
     Route: 064
     Dates: start: 201101, end: 201107
  4. SERTRALINE HCL [Suspect]
     Indication: ANXIETY
     Dosage: UNK
     Route: 064
     Dates: start: 1986, end: 1991
  5. SERTRALINE HCL [Suspect]
     Indication: DEPRESSION
     Dosage: UNK
     Route: 064
     Dates: start: 1994, end: 2000
  6. SERTRALINE HCL [Suspect]
     Indication: AFFECTIVE DISORDER
     Dosage: UNK
     Route: 064
     Dates: start: 201101, end: 201107
  7. TYLENOL [Concomitant]
     Dosage: UNK
     Route: 064
  8. PRENATABS [Concomitant]
     Dosage: UNK
     Route: 064
  9. ZOFRAN [Concomitant]
     Dosage: UNK
     Route: 064
  10. PERCOCET [Concomitant]
     Dosage: UNK
     Route: 064
  11. AMOXICILLIN [Concomitant]
     Dosage: UNK
     Route: 064
  12. ATIVAN [Concomitant]
     Dosage: UNK
     Route: 064
  13. BENADRYL [Concomitant]
     Dosage: UNK
     Route: 064
  14. ERYTHROMYCIN [Concomitant]
     Dosage: UNK
     Route: 064
  15. OXYCODONE-APAP [Concomitant]
     Dosage: UNK
     Route: 064
  16. ONDANSETRON ODT [Concomitant]
     Dosage: UNK
     Route: 064
  17. ONDANSETRON HYDROCHLORIDE [Concomitant]
     Dosage: UNK
     Route: 064
  18. LORAZEPAM [Concomitant]
     Dosage: UNK
     Route: 064
  19. DIPHENHYDRAMINE [Concomitant]
     Dosage: UNK
     Route: 064
  20. NIFEDIPINE [Concomitant]
     Dosage: UNK
     Route: 064
  21. OXYCODONE-ACETAMINOPHEN [Concomitant]
     Dosage: UNK
     Route: 064
  22. BACTRIN DS [Concomitant]
     Dosage: UNK
     Route: 064
  23. ALBUTEROL [Concomitant]
     Dosage: UNK
     Route: 064
  24. RHOGAM [Concomitant]
     Dosage: UNK
     Route: 064
  25. NITROFURANTOIN MCR [Concomitant]
     Dosage: UNK
     Route: 064
  26. PROMETHAZINE [Concomitant]
     Dosage: UNK
     Route: 064
  27. SULFAMETHOXAZOLE-TMP [Concomitant]
     Dosage: UNK
     Route: 064
  28. METRONIDAZOLE [Concomitant]
     Dosage: UNK
     Route: 064
  29. BUPROPION SR [Concomitant]
     Dosage: UNK
     Route: 064
  30. WELLBUTRIN [Concomitant]
     Dosage: UNK
     Route: 064
  31. PHENERGAN [Concomitant]
     Dosage: UNK
     Route: 064
  32. PROCARDIA [Concomitant]
     Dosage: UNK
     Route: 064
  33. PRENATAL VITAMINS [Concomitant]
     Route: 064

REACTIONS (5)
  - Maternal exposure during pregnancy [Fatal]
  - Congenital diaphragmatic hernia [Fatal]
  - Pulmonary hypoplasia [Fatal]
  - Neonatal respiratory failure [Fatal]
  - Premature baby [Unknown]
